FAERS Safety Report 9549744 (Version 2)
Quarter: 2013Q3

REPORT INFORMATION
  Report Type: Spontaneous
  Country: US (occurrence: US)
  Receive Date: 20130924
  Receipt Date: 20130924
  Transmission Date: 20140515
  Serious: No
  Sender: FDA-Public Use
  Company Number: US-ALLERGAN-1311915US

PATIENT
  Age: 59 Year
  Sex: Female

DRUGS (3)
  1. LUMIGAN 0.01% [Suspect]
     Indication: GROWTH OF EYELASHES
     Dosage: 2 UNK, UNK
     Route: 061
  2. LUMIGAN 0.01% [Suspect]
     Dosage: UNK
  3. SYNTHROID [Concomitant]
     Indication: HYPOTHYROIDISM
     Dosage: 0.125 MG, UNK
     Route: 048

REACTIONS (5)
  - Trichiasis [Recovering/Resolving]
  - Trichiasis [Recovering/Resolving]
  - Trichorrhexis [Recovering/Resolving]
  - Off label use [Unknown]
  - Wrong technique in drug usage process [Unknown]
